FAERS Safety Report 23622026 (Version 1)
Quarter: 2024Q1

REPORT INFORMATION
  Report Type: Spontaneous
  Country: US (occurrence: None)
  Receive Date: 20240311
  Receipt Date: 20240311
  Transmission Date: 20240409
  Serious: Yes (Other)
  Sender: FDA-Public Use
  Company Number: None

PATIENT
  Age: 83 Year
  Sex: Female
  Weight: 71.1 kg

DRUGS (1)
  1. NEXLETOL [Suspect]
     Active Substance: BEMPEDOIC ACID
     Indication: Low density lipoprotein increased
     Dosage: OTHER QUANTITY : 30 TABLET(S);?OTHER FREQUENCY : 1/2 FOR 3/WEEK;?
     Route: 048
     Dates: start: 20231227, end: 20240122

REACTIONS (2)
  - Arthritis [None]
  - Gait disturbance [None]

NARRATIVE: CASE EVENT DATE: 20240123
